FAERS Safety Report 4805386-1 (Version None)
Quarter: 2005Q4

REPORT INFORMATION
  Report Type: 
  Country: None (occurrence: None)
  Receive Date: 20051017
  Receipt Date: 20051003
  Transmission Date: 20060501
  Serious: Yes (Other)
  Sender: FDA-Public Use
  Company Number: 2005137118

PATIENT
  Age: 35 Year
  Sex: Male
  Weight: 92.9874 kg

DRUGS (5)
  1. ZYRTEC [Suspect]
     Indication: MULTIPLE ALLERGIES
     Dosage: 10 MG (10 MG, 1 IN 1 D), ORAL
     Route: 048
     Dates: end: 20050101
  2. SOTALOL HCL [Concomitant]
  3. FLONASE (FLUTICASONE PROPIOANTE) [Concomitant]
  4. ASPIRIN [Concomitant]
  5. MULTIVITAMIN [Concomitant]

REACTIONS (3)
  - DRUG EFFECT DECREASED [None]
  - PYREXIA [None]
  - SINUSITIS [None]
